FAERS Safety Report 8224057-5 (Version None)
Quarter: 2012Q1

REPORT INFORMATION
  Report Type: 
  Country: None (occurrence: None)
  Receive Date: 20120321
  Receipt Date: 20120316
  Transmission Date: 20120608
  Serious: Yes (Other)
  Sender: FDA-Public Use
  Company Number: PHHY2012FR023783

PATIENT
  Age: 87 Year
  Sex: Female

DRUGS (5)
  1. ASPIRIN [Concomitant]
     Indication: CORONARY ARTERY DISEASE
  2. VALSARTAN [Suspect]
     Dosage: 40 MG, DAILY
     Dates: start: 20120317
  3. VALSARTAN [Suspect]
     Dosage: 140 MG, DAILY
     Dates: start: 20120224, end: 20120316
  4. CORVASAL [Concomitant]
     Indication: CORONARY ARTERY DISEASE
  5. VALSARTAN [Suspect]
     Indication: HYPERTENSION
     Dosage: 120 MG, DAILY (1DF OF TAREG 40MG AND 1 DF OF TAREG 80MG)
     Dates: end: 20120223

REACTIONS (3)
  - CARDIAC FAILURE [None]
  - PRURITUS [None]
  - RENAL FAILURE ACUTE [None]
